FAERS Safety Report 24427759 (Version 1)
Quarter: 2024Q4

REPORT INFORMATION
  Report Type: Spontaneous
  Country: AT (occurrence: AT)
  Receive Date: 20241011
  Receipt Date: 20241011
  Transmission Date: 20250115
  Serious: Yes (Death, Life-Threatening, Hospitalization, Other)
  Sender: SANDOZ
  Company Number: None

PATIENT
  Age: 48 Year
  Sex: Male

DRUGS (25)
  1. BELANTAMAB MAFODOTIN [Suspect]
     Active Substance: BELANTAMAB MAFODOTIN
     Indication: Plasma cell myeloma refractory
     Dosage: UNK (6 CYCLES) ??-MAR-2022
     Route: 065
     Dates: end: 202209
  2. BORTEZOMIB [Suspect]
     Active Substance: BORTEZOMIB
     Indication: Plasma cell myeloma refractory
     Dosage: UNK (6 CYCLES) ??-MAR-2022
     Route: 065
     Dates: end: 202209
  3. CISPLATIN [Suspect]
     Active Substance: CISPLATIN
     Indication: Plasma cell myeloma refractory
     Dosage: UNK ??-FEB-2022
     Route: 065
  4. CYCLOPHOSPHAMIDE [Suspect]
     Active Substance: CYCLOPHOSPHAMIDE
     Dosage: UNK (1 CYCLE) ??-JAN-2023
     Route: 065
  5. CYCLOPHOSPHAMIDE [Suspect]
     Active Substance: CYCLOPHOSPHAMIDE
     Indication: Plasma cell myeloma refractory
     Dosage: UNK ??-???-2023
     Route: 065
     Dates: end: 202301
  6. CYCLOPHOSPHAMIDE [Suspect]
     Active Substance: CYCLOPHOSPHAMIDE
     Dosage: UNK ??-FEB-2022
     Route: 065
  7. DECADRON (DEXAMETHASONE SODIUM PHOSPHATE) [Suspect]
     Active Substance: DEXAMETHASONE SODIUM PHOSPHATE
     Dosage: UNK
     Route: 065
     Dates: start: 202112
  8. DECADRON (DEXAMETHASONE SODIUM PHOSPHATE) [Suspect]
     Active Substance: DEXAMETHASONE SODIUM PHOSPHATE
     Indication: Plasma cell myeloma refractory
     Dosage: UNK (1 CYCLE) ??-DEC-2022
     Route: 065
  9. DECADRON (DEXAMETHASONE SODIUM PHOSPHATE) [Suspect]
     Active Substance: DEXAMETHASONE SODIUM PHOSPHATE
     Dosage: UNK (1 CYCLE) ??-JAN-2023
     Route: 065
  10. DECADRON (DEXAMETHASONE SODIUM PHOSPHATE) [Suspect]
     Active Substance: DEXAMETHASONE SODIUM PHOSPHATE
     Dosage: UNK (6 CYCLES)
     Route: 065
     Dates: start: 202203, end: 202209
  11. DECADRON (DEXAMETHASONE SODIUM PHOSPHATE) [Suspect]
     Active Substance: DEXAMETHASONE SODIUM PHOSPHATE
     Dosage: UNK (TAPERING) 13-FEB-2023
     Route: 065
  12. DECADRON (DEXAMETHASONE SODIUM PHOSPHATE) [Suspect]
     Active Substance: DEXAMETHASONE SODIUM PHOSPHATE
     Dosage: UNK ??-FEB-2022
     Route: 065
  13. DECADRON (DEXAMETHASONE SODIUM PHOSPHATE) [Suspect]
     Active Substance: DEXAMETHASONE SODIUM PHOSPHATE
     Dosage: UNK ??-NOV-2020
     Route: 065
     Dates: end: 202105
  14. DOXORUBICIN HYDROCHLORIDE [Suspect]
     Active Substance: DOXORUBICIN HYDROCHLORIDE
     Indication: Plasma cell myeloma refractory
     Dosage: UNK ??-???-2023
     Route: 065
  15. DARATUMUMAB [Suspect]
     Active Substance: DARATUMUMAB
     Indication: Plasma cell myeloma refractory
     Dosage: UNK ??-DEC-2021
     Route: 065
  16. ETOPOSIDE [Suspect]
     Active Substance: ETOPOSIDE
     Dosage: UNK ??-???-2023
     Route: 065
  17. ETOPOSIDE [Suspect]
     Active Substance: ETOPOSIDE
     Indication: Plasma cell myeloma refractory
     Dosage: UNK ??-FEB-2022
     Route: 065
  18. FLUDARABINE [Suspect]
     Active Substance: FLUDARABINE PHOSPHATE
     Indication: Plasma cell myeloma refractory
     Dosage: UNK ??-???-2023
     Route: 065
  19. KYPROLIS [Suspect]
     Active Substance: CARFILZOMIB
     Dosage: UNK (1 CYCLE) ??-DEC-2022
     Route: 065
  20. KYPROLIS [Suspect]
     Active Substance: CARFILZOMIB
     Dosage: UNK (1 CYCLE) ??-JAN-2023
     Route: 065
     Dates: end: 202301
  21. KYPROLIS [Suspect]
     Active Substance: CARFILZOMIB
     Indication: Plasma cell myeloma refractory
     Dosage: UNK ??-NOV-2020
     Route: 065
     Dates: end: 202105
  22. LENALIDOMIDE [Suspect]
     Active Substance: LENALIDOMIDE
     Indication: Plasma cell myeloma refractory
     Dosage: UNK ??-NOV-2020
     Route: 065
     Dates: end: 202105
  23. MELPHALAN [Suspect]
     Active Substance: MELPHALAN
     Indication: Plasma cell myeloma refractory
     Dosage: 200 MILLIGRAM/SQ. METER (REINFUSION OF 5.49X10^6 CD+ CELLS/KG BODY WEIGHT)
     Route: 065
  24. POMALIDOMIDE [Suspect]
     Active Substance: POMALIDOMIDE
     Indication: Plasma cell myeloma refractory
     Dosage: ??-DEC-2021
     Route: 065
  25. TALQUETAMAB [Suspect]
     Active Substance: TALQUETAMAB
     Indication: Plasma cell myeloma refractory
     Dosage: 11-OCT-2023 00:00
     Route: 065
     Dates: end: 20231219

REACTIONS (22)
  - Death [Fatal]
  - Neutropenia [Unknown]
  - Cytokine release syndrome [Recovered/Resolved]
  - Acute kidney injury [Unknown]
  - Plasmacytoma [Unknown]
  - Metastases to adrenals [Unknown]
  - Plasma cell myeloma [Unknown]
  - Oesophageal candidiasis [Unknown]
  - Pleural disorder [Unknown]
  - Apheresis [Unknown]
  - Eye swelling [Unknown]
  - Diplopia [Unknown]
  - Ocular hyperaemia [Unknown]
  - Night sweats [Unknown]
  - Urinary tract infection [Unknown]
  - Fatigue [Unknown]
  - Bone pain [Unknown]
  - Decreased appetite [Unknown]
  - Pain [Unknown]
  - Weight decreased [Unknown]
  - Liver function test increased [Unknown]
  - Off label use [Unknown]

NARRATIVE: CASE EVENT DATE: 20211101
